FAERS Safety Report 21835657 (Version 4)
Quarter: 2025Q2

REPORT INFORMATION
  Report Type: Spontaneous
  Country: US (occurrence: US)
  Receive Date: 20230109
  Receipt Date: 20250513
  Transmission Date: 20250716
  Serious: No
  Sender: SANOFI AVENTIS
  Company Number: US-SA-SAC20230104000592

PATIENT
  Age: 39 Year
  Sex: Male

DRUGS (16)
  1. DUPIXENT [Suspect]
     Active Substance: DUPILUMAB
     Indication: Asthma
     Dosage: 300 MG, QOW
     Route: 058
     Dates: start: 20220421
  2. ALBUTEROL SULFATE [Concomitant]
     Active Substance: ALBUTEROL SULFATE
  3. AZITHROMYCIN [Concomitant]
     Active Substance: AZITHROMYCIN
  4. DILTIAZEM [Concomitant]
     Active Substance: DILTIAZEM
  5. FLECAINIDE [Concomitant]
     Active Substance: FLECAINIDE
  6. MONTELUKAST [Concomitant]
     Active Substance: MONTELUKAST
  7. PREDNISONE [Concomitant]
     Active Substance: PREDNISONE
  8. SPIRIVA [Concomitant]
     Active Substance: TIOTROPIUM BROMIDE MONOHYDRATE
  9. SYMBICORT [Concomitant]
     Active Substance: BUDESONIDE\FORMOTEROL FUMARATE DIHYDRATE
  10. DILTIAZEM HYDROCHLORIDE [Concomitant]
     Active Substance: DILTIAZEM HYDROCHLORIDE
  11. DEXAMETHASONE [Concomitant]
     Active Substance: DEXAMETHASONE
  12. ALBUTEROL [Concomitant]
     Active Substance: ALBUTEROL
  13. HYDROCORTISONE [Concomitant]
     Active Substance: HYDROCORTISONE
  14. AMOXICILLIN [Concomitant]
     Active Substance: AMOXICILLIN
  15. DILTIAZEM [Concomitant]
     Active Substance: DILTIAZEM
  16. AMOXICILLIN [Concomitant]
     Active Substance: AMOXICILLIN

REACTIONS (5)
  - Impaired quality of life [Not Recovered/Not Resolved]
  - Sleep disorder due to a general medical condition [Not Recovered/Not Resolved]
  - Asthma [Unknown]
  - Drug ineffective [Unknown]
  - Drug ineffective for unapproved indication [Unknown]

NARRATIVE: CASE EVENT DATE: 20220101
